FAERS Safety Report 19104543 (Version 2)
Quarter: 2022Q1

REPORT INFORMATION
  Report Type: Spontaneous
  Country: US (occurrence: US)
  Receive Date: 20210408
  Receipt Date: 20220221
  Transmission Date: 20220423
  Serious: No
  Sender: FDA-Public Use
  Company Number: US-SA-SAC20210406000516

PATIENT
  Age: 55 Year
  Sex: Female

DRUGS (1)
  1. AUBAGIO [Suspect]
     Active Substance: TERIFLUNOMIDE
     Indication: Multiple sclerosis
     Dosage: 14 MG, QD
     Route: 048
     Dates: start: 20191230

REACTIONS (5)
  - Pain in extremity [Unknown]
  - Diarrhoea [Unknown]
  - Osteoarthritis [Unknown]
  - Peroneal nerve palsy [Unknown]
  - Fatigue [Unknown]
